FAERS Safety Report 9581383 (Version 1)
Quarter: 2013Q4

REPORT INFORMATION
  Report Type: Spontaneous
  Country: US (occurrence: US)
  Receive Date: 20131002
  Receipt Date: 20131002
  Transmission Date: 20140711
  Serious: Yes (Hospitalization)
  Sender: FDA-Public Use
  Company Number: US-B.I. PHARMACEUTICALS,INC./RIDGEFIELD-2013-BI-30158BP

PATIENT
  Age: 46 Year
  Sex: Male
  Weight: 127 kg

DRUGS (8)
  1. JENTADUETO [Suspect]
     Indication: DIABETES MELLITUS
     Dosage: DOSE PER APPLICATION: 2.5 MG / 1000 MG; DAILY DOSE: 5 MG/2000 MG
     Route: 048
     Dates: start: 2012, end: 201308
  2. LISINOPRIL [Concomitant]
     Dates: start: 20130821
  3. PANTOPRAZOLE [Concomitant]
     Dates: start: 20130821
  4. LIPITOR [Concomitant]
     Dates: start: 2011
  5. COREG [Concomitant]
     Dates: start: 20130821
  6. ASPIRIN [Concomitant]
     Dosage: 81 MG
     Route: 048
     Dates: start: 20130821
  7. VITAMIN C [Concomitant]
     Dosage: 500 MG
     Route: 048
     Dates: start: 20130821
  8. IRON TABLET [Concomitant]
     Dosage: 45 MG
     Route: 048

REACTIONS (1)
  - Skin ulcer [Recovered/Resolved]
